FAERS Safety Report 7307558-3 (Version None)
Quarter: 2011Q1

REPORT INFORMATION
  Report Type: 
  Country: None (occurrence: None)
  Receive Date: 20110223
  Receipt Date: 20110221
  Transmission Date: 20110831
  Serious: Yes (Hospitalization)
  Sender: FDA-Public Use
  Company Number: JP-PFIZER INC-2011037703

PATIENT
  Age: 76 Year
  Sex: Male

DRUGS (2)
  1. CHAMPIX [Suspect]
     Dosage: UNK
     Route: 048
     Dates: start: 20110112
  2. CHAMPIX [Suspect]
     Dosage: 1 MG, 2X/DAY

REACTIONS (2)
  - HEAD TITUBATION [None]
  - TREMOR [None]
